FAERS Safety Report 8655555 (Version 6)
Quarter: 2012Q4

REPORT INFORMATION
  Report Type: 
  Country: US (occurrence: US)
  Receive Date: 20120622
  Receipt Date: 20120918
  Transmission Date: 20130627
  Serious: Yes (Hospitalization, Disabling, Other)
  Sender: FDA-Public Use
  Company Number: US-009507513-2010SP002783

PATIENT

DRUGS (2)
  1. NUVARING [Suspect]
     Indication: CONTRACEPTION
     Dosage: 1 DF, QM
     Route: 067
     Dates: start: 20060517, end: 20070223
  2. NUVARING [Suspect]
     Dosage: 1 DF, QM
     Route: 067
     Dates: start: 20080909, end: 20091025

REACTIONS (22)
  - Dyspnoea [Unknown]
  - Antiphospholipid syndrome [Not Recovered/Not Resolved]
  - Urine abnormality [Unknown]
  - Pyrexia [Unknown]
  - Cerebrovascular accident [Unknown]
  - Urticaria [Recovered/Resolved]
  - Abdominal pain [Unknown]
  - Hypotension [Unknown]
  - Adjustment disorder [Unknown]
  - Nervous system disorder [Unknown]
  - Dermatitis atopic [Recovered/Resolved]
  - Postpartum depression [Unknown]
  - Depression [Not Recovered/Not Resolved]
  - Vomiting [Unknown]
  - Hypothyroidism [Unknown]
  - Anxiety [Unknown]
  - Victim of crime [Unknown]
  - Head injury [Unknown]
  - Hyperlipidaemia [Unknown]
  - Encephalomalacia [Unknown]
  - Sensory loss [Unknown]
  - Papilloma viral infection [Unknown]
